FAERS Safety Report 4316730-6 (Version None)
Quarter: 2004Q1

REPORT INFORMATION
  Report Type: 
  Country: None (occurrence: None)
  Receive Date: 20040311
  Receipt Date: 20040309
  Transmission Date: 20041129
  Serious: No
  Sender: FDA-Public Use
  Company Number: MP04-22

PATIENT
  Sex: Female

DRUGS (2)
  1. MIDRIN [Suspect]
     Indication: MIGRAINE
  2. PAXIL [Suspect]

REACTIONS (2)
  - DRUG INTERACTION [None]
  - LOSS OF CONSCIOUSNESS [None]
